FAERS Safety Report 17895544 (Version 2)
Quarter: 2020Q3

REPORT INFORMATION
  Report Type: Spontaneous
  Country: US (occurrence: US)
  Receive Date: 20200615
  Receipt Date: 20200703
  Transmission Date: 20201103
  Serious: Yes (Other)
  Sender: FDA-Public Use
  Company Number: US-HORIZON-TEP-0467-2020

PATIENT
  Age: 41 Year
  Sex: Female
  Weight: 87 kg

DRUGS (8)
  1. ACETAMINOPHEN?CODEINE [Concomitant]
     Active Substance: ACETAMINOPHEN\CODEINE PHOSPHATE
  2. IBUPROFEN 600MG TABLET [Concomitant]
  3. DIPHENHYDRAMINE. [Concomitant]
     Active Substance: DIPHENHYDRAMINE
  4. SODIUM CHLORIDE 0.9% [Concomitant]
     Active Substance: SODIUM CHLORIDE
  5. NORMAL SALINE [Concomitant]
     Active Substance: SODIUM CHLORIDE
  6. EPINEPHRINE HCL [Concomitant]
     Active Substance: EPINEPHRINE
  7. TEPEZZA [Suspect]
     Active Substance: TEPROTUMUMAB-TRBW
     Indication: ENDOCRINE OPHTHALMOPATHY
     Dosage: EVERY THREE WEEKS
     Route: 042
  8. CHLORHEXIDINE GLUCONATE. [Concomitant]
     Active Substance: CHLORHEXIDINE GLUCONATE

REACTIONS (6)
  - Faeces hard [Unknown]
  - Constipation [Recovered/Resolved]
  - Haematochezia [Recovered/Resolved]
  - Muscle spasms [Recovering/Resolving]
  - Irritability [Recovered/Resolved]
  - Abnormal weight gain [Unknown]
